FAERS Safety Report 24783778 (Version 1)
Quarter: 2024Q4

REPORT INFORMATION
  Report Type: Spontaneous
  Country: FR (occurrence: FR)
  Receive Date: 20241227
  Receipt Date: 20241227
  Transmission Date: 20250115
  Serious: Yes (Hospitalization)
  Sender: IMMUNOCORE
  Company Number: FR-IMMUNOCORE, LTD.-2022-IMC-000818

PATIENT

DRUGS (7)
  1. TEBENTAFUSP [Suspect]
     Active Substance: TEBENTAFUSP
     Indication: Choroid melanoma
     Dosage: 68 MICROGRAM, QW
     Route: 042
     Dates: start: 20211209, end: 20220201
  2. KEYTRUDA [Suspect]
     Active Substance: PEMBROLIZUMAB
     Indication: Choroid melanoma
     Dosage: 1 CYCLICAL
     Route: 042
     Dates: start: 202007, end: 2020
  3. DACARBAZINE [Suspect]
     Active Substance: DACARBAZINE
     Indication: Choroid melanoma
     Dosage: 1620 MILLIGRAM (CYCLICAL)
     Route: 042
     Dates: start: 20210112, end: 20210226
  4. FOTEMUSTINE [Suspect]
     Active Substance: FOTEMUSTINE
     Indication: Choroid melanoma
     Dosage: UNK, Q 3W
     Route: 042
     Dates: start: 20210408, end: 20210902
  5. LEVOTHYROXINE [Concomitant]
     Active Substance: LEVOTHYROXINE
     Indication: Product used for unknown indication
  6. DORZOLAMIDE HYDROCHLORIDE\TIMOLOL MALEATE [Concomitant]
     Active Substance: DORZOLAMIDE HYDROCHLORIDE\TIMOLOL MALEATE
     Indication: Product used for unknown indication
  7. LATANOPROST [Concomitant]
     Active Substance: LATANOPROST
     Indication: Product used for unknown indication

REACTIONS (1)
  - Acute myeloid leukaemia [Not Recovered/Not Resolved]

NARRATIVE: CASE EVENT DATE: 20220201
